FAERS Safety Report 15715617 (Version 1)
Quarter: 2018Q4

REPORT INFORMATION
  Report Type: Report from Study
  Country: US (occurrence: US)
  Receive Date: 20181212
  Receipt Date: 20181212
  Transmission Date: 20190205
  Serious: Yes (Death, Hospitalization, Other)
  Sender: FDA-Public Use
  Company Number: US-GILEAD-2018-0379722

PATIENT
  Age: 62 Year
  Sex: Male

DRUGS (1)
  1. RANOLAZINE. [Suspect]
     Active Substance: RANOLAZINE
     Indication: ANGINA PECTORIS
     Dosage: 1000 MG, BID
     Route: 048
     Dates: end: 20181119

REACTIONS (5)
  - Cardiac disorder [Fatal]
  - Parkinson^s disease [Fatal]
  - Head injury [Unknown]
  - Fall [Unknown]
  - Hypertension [Fatal]

NARRATIVE: CASE EVENT DATE: 201805
